FAERS Safety Report 9289532 (Version 3)
Quarter: 2014Q1

REPORT INFORMATION
  Report Type: Spontaneous
  Country: US (occurrence: US)
  Receive Date: 20130515
  Receipt Date: 20140210
  Transmission Date: 20141002
  Serious: Yes (Death, Hospitalization)
  Sender: FDA-Public Use
  Company Number: US-B.I. PHARMACEUTICALS,INC./RIDGEFIELD-2013-BI-13378BP

PATIENT
  Age: 73 Year
  Sex: Male
  Weight: 77.11 kg

DRUGS (5)
  1. PRADAXA [Suspect]
     Indication: ATRIAL FIBRILLATION
     Dates: start: 20110611, end: 20111107
  2. LISINOPRIL [Concomitant]
     Dates: start: 2001, end: 2011
  3. CLONAZEPAM [Concomitant]
     Dates: start: 2001, end: 2011
  4. METFORMIN HCL [Concomitant]
     Dates: start: 2001, end: 2011
  5. ATENOLOL [Concomitant]
     Dates: start: 2001, end: 2011

REACTIONS (3)
  - Cardiac arrest [Fatal]
  - Brain injury [Fatal]
  - Acute myocardial infarction [Unknown]
